FAERS Safety Report 15290654 (Version 2)
Quarter: 2018Q3

REPORT INFORMATION
  Report Type: Spontaneous
  Country: GB (occurrence: GB)
  Receive Date: 20180817
  Receipt Date: 20180929
  Transmission Date: 20181010
  Serious: Yes (Other)
  Sender: FDA-Public Use
  Company Number: GB-009507513-2008-170661-NL

PATIENT
  Age: 29 Year
  Sex: Female
  Weight: 58.2 kg

DRUGS (3)
  1. DICLOFENAC [Concomitant]
     Active Substance: DICLOFENAC
     Indication: POST-TRAUMATIC NECK SYNDROME
     Dosage: ONGOING
     Route: 048
     Dates: start: 20071221
  2. CLOTRIMAZOLE. [Concomitant]
     Active Substance: CLOTRIMAZOLE
     Indication: CANDIDA INFECTION
     Dosage: PESSARY, 3 TIMES A DAY FOR CREAM
     Dates: start: 20071224
  3. IMPLANON [Suspect]
     Active Substance: ETONOGESTREL
     Indication: CONTRACEPTION
     Dosage: UNK DF
     Route: 058
     Dates: start: 20050624, end: 20080213

REACTIONS (2)
  - Pregnancy with implant contraceptive [Recovered/Resolved]
  - Lower respiratory tract infection [Recovered/Resolved]

NARRATIVE: CASE EVENT DATE: 20071217
